APPROVED DRUG PRODUCT: ERYTHROMYCIN
Active Ingredient: ERYTHROMYCIN
Strength: 500MG
Dosage Form/Route: TABLET;ORAL
Application: A213628 | Product #002 | TE Code: AB
Applicant: CADILA PHARMACEUTICALS LTD
Approved: Jun 28, 2021 | RLD: No | RS: Yes | Type: RX